FAERS Safety Report 7437662-0 (Version None)
Quarter: 2011Q2

REPORT INFORMATION
  Report Type: 
  Country: None (occurrence: None)
  Receive Date: 20110426
  Receipt Date: 20110415
  Transmission Date: 20111010
  Serious: Yes (Death, Life-Threatening)
  Sender: FDA-Public Use
  Company Number: JP-ROCHE-766768

PATIENT
  Sex: Male
  Weight: 59 kg

DRUGS (19)
  1. PARIET [Concomitant]
     Route: 048
     Dates: start: 20110107, end: 20110115
  2. LAXOBERON [Concomitant]
     Dosage: PERORAL LIQUID PREPARATION; DOSE:15 GTT; STOP DATE: 2011
     Route: 048
     Dates: start: 20110306
  3. MAGLAX [Concomitant]
     Route: 048
     Dates: start: 20110107, end: 20110115
  4. CARBOPLATIN [Concomitant]
     Route: 041
     Dates: start: 20110119, end: 20110119
  5. VOLTAREN [Concomitant]
     Route: 048
     Dates: start: 20110107, end: 20110115
  6. PURSENNID [Concomitant]
     Route: 048
     Dates: start: 20110311, end: 20110315
  7. BAKTAR [Concomitant]
     Route: 048
     Dates: start: 20110311, end: 20110315
  8. LACTULOSE [Concomitant]
     Dosage: PERORAL LIQUID PREPARATION
     Route: 048
     Dates: start: 20110310, end: 20110315
  9. PACLITAXEL [Concomitant]
     Route: 041
     Dates: start: 20110315, end: 20110315
  10. AVASTIN [Suspect]
     Indication: LUNG ADENOCARCINOMA METASTATIC
     Route: 041
     Dates: start: 20110119, end: 20110315
  11. MORPHINE HYDROCHLORIDE [Suspect]
     Indication: PAIN
     Dosage: STOP DATE: 2011.
     Route: 042
     Dates: start: 20110302
  12. PRIMPERAN TAB [Concomitant]
     Route: 048
     Dates: start: 20110107, end: 20110315
  13. ZOMETA [Concomitant]
     Route: 041
     Dates: start: 20110205, end: 20110205
  14. CARBOPLATIN [Concomitant]
     Route: 041
     Dates: start: 20110315, end: 20110315
  15. CIPROFLOXACIN [Concomitant]
     Route: 041
     Dates: start: 20110314, end: 20110315
  16. VFEND [Concomitant]
     Dosage: STOP DATE: 2011
     Dates: start: 20110308
  17. MUCOSTA [Concomitant]
     Route: 048
     Dates: start: 20110107, end: 20110315
  18. DECADRON [Concomitant]
     Route: 048
     Dates: start: 20110121, end: 20110315
  19. PACLITAXEL [Concomitant]
     Route: 041
     Dates: start: 20110119, end: 20110119

REACTIONS (3)
  - PULMONARY OEDEMA [None]
  - LARGE INTESTINE PERFORATION [None]
  - PNEUMONIA [None]
